FAERS Safety Report 13100470 (Version 1)
Quarter: 2017Q1

REPORT INFORMATION
  Report Type: Spontaneous
  Country: GB (occurrence: GB)
  Receive Date: 20170110
  Receipt Date: 20170110
  Transmission Date: 20170428
  Serious: Yes (Other)
  Sender: FDA-Public Use
  Company Number: GB-CONCORDIA PHARMACEUTICALS INC.-GSH201701-000100

PATIENT
  Age: 2 Year
  Sex: Female

DRUGS (3)
  1. MEDREICH AMOXICILLIN [Concomitant]
     Dosage: 250 MG/5ML
  2. PREDNISOLONE. [Suspect]
     Active Substance: PREDNISOLONE
     Indication: ASTHMA
     Dosage: IN THE MORNING FOR THREE DAYS
     Route: 048
     Dates: start: 20161221, end: 20161223
  3. SALBUTAMOL [Concomitant]
     Active Substance: ALBUTEROL
     Route: 055
     Dates: start: 20160701

REACTIONS (4)
  - Irritability [Recovered/Resolved with Sequelae]
  - Screaming [Recovered/Resolved with Sequelae]
  - Psychomotor hyperactivity [Recovered/Resolved with Sequelae]
  - Abnormal behaviour [Recovered/Resolved with Sequelae]

NARRATIVE: CASE EVENT DATE: 20161221
